FAERS Safety Report 22236854 (Version 2)
Quarter: 2023Q2

REPORT INFORMATION
  Report Type: Report from Study
  Country: KR (occurrence: KR)
  Receive Date: 20230420
  Receipt Date: 20230504
  Transmission Date: 20230721
  Serious: Yes (Hospitalization, Other)
  Sender: FDA-Public Use
  Company Number: KR-BRISTOL-MYERS SQUIBB COMPANY-2023-049362

PATIENT
  Age: 62 Year
  Sex: Female
  Weight: 80 kg

DRUGS (14)
  1. DARATUMUMAB [Suspect]
     Active Substance: DARATUMUMAB
     Indication: Plasma cell myeloma
     Dosage: THE PATIENT RECEIVED ONLY ONE DOSE OF DARATUMUMAB STUDY THERAPY.
     Route: 058
     Dates: start: 20221205
  2. IBERDOMIDE [Suspect]
     Active Substance: IBERDOMIDE
     Indication: Plasma cell myeloma
     Dosage: PRIOR TO THE ONSET OF EVENT, THE PATIENT RECEIVED HER MOST RECENT DOSE OF IBERDOMIDE ON 25-DEC-2022
     Route: 048
     Dates: start: 20221205
  3. DEXAMETHASONE [Suspect]
     Active Substance: DEXAMETHASONE
     Indication: Plasma cell myeloma
     Dosage: THE PATIENT RECEIVED ONLY ONE DOSE OF DEXAMETHASONE STUDY THERAPY
     Route: 048
     Dates: start: 20221205
  4. ACYCLOVIR [Concomitant]
     Active Substance: ACYCLOVIR
     Indication: Prophylaxis
     Route: 048
     Dates: start: 20221205
  5. ALMAGEL [ALUMINIUM HYDROXIDE;ALUMINIUM PHOSPHATE;MAGNESIUM HYDROXIDE] [Concomitant]
     Indication: Gastrooesophageal reflux disease
     Route: 048
     Dates: start: 20221226
  6. ASPIRIN [Concomitant]
     Active Substance: ASPIRIN
     Indication: Prophylaxis
     Route: 048
     Dates: start: 20221205
  7. METHYLEPHEDRINE HYDROCHLORIDE, (+/-)- [Concomitant]
     Active Substance: METHYLEPHEDRINE HYDROCHLORIDE, (+/-)-
     Indication: Prophylaxis
     Route: 048
     Dates: start: 20221212
  8. ESOMEPRAZOLE [Concomitant]
     Active Substance: ESOMEPRAZOLE
     Indication: Gastrooesophageal reflux disease
     Route: 048
     Dates: start: 20221219
  9. FAMOTIDINE [Concomitant]
     Active Substance: FAMOTIDINE
     Indication: Gastrooesophageal reflux disease
     Route: 048
     Dates: start: 20230116
  10. FAMOTIDINE [Concomitant]
     Active Substance: FAMOTIDINE
     Route: 048
     Dates: start: 20230202
  11. LIMAPROST [Concomitant]
     Active Substance: LIMAPROST
     Indication: Back pain
     Route: 048
     Dates: start: 20230202
  12. MUPIROCIN [Concomitant]
     Active Substance: MUPIROCIN
     Indication: Product used for unknown indication
     Route: 062
     Dates: start: 20230213
  13. PREGABALIN [Concomitant]
     Active Substance: PREGABALIN
     Indication: Back pain
     Route: 048
     Dates: start: 20230116
  14. PREGABALIN [Concomitant]
     Active Substance: PREGABALIN
     Route: 048
     Dates: start: 20230202

REACTIONS (1)
  - Febrile neutropenia [Recovered/Resolved]

NARRATIVE: CASE EVENT DATE: 20230404
